FAERS Safety Report 9209640 (Version 2)
Quarter: 2013Q4

REPORT INFORMATION
  Report Type: Spontaneous
  Country: US (occurrence: US)
  Receive Date: 20130404
  Receipt Date: 20131115
  Transmission Date: 20140711
  Serious: Yes (Other)
  Sender: FDA-Public Use
  Company Number: US-BAYER-2013-040165

PATIENT
  Age: 23 Year
  Sex: Female
  Weight: 92.06 kg

DRUGS (6)
  1. YAZ [Suspect]
     Dosage: UNK
     Dates: start: 200712
  2. YASMIN [Suspect]
     Dosage: UNK
     Dates: start: 200712
  3. OCELLA [Suspect]
     Dosage: UNK
     Dates: start: 200712
  4. CIPROFLOXACIN [Concomitant]
     Dosage: UNK
     Route: 048
     Dates: start: 20111114
  5. GLUCOSAMINE [Concomitant]
     Dosage: UNK
     Route: 048
     Dates: start: 20111114
  6. IBUPROFEN [Concomitant]
     Dosage: UNK
     Route: 048
     Dates: start: 20111114

REACTIONS (9)
  - Cholecystectomy [None]
  - Cholecystitis chronic [None]
  - Injury [None]
  - Pain [None]
  - General physical health deterioration [None]
  - Emotional distress [None]
  - Anxiety [None]
  - Anhedonia [None]
  - Pain [None]
